FAERS Safety Report 18863638 (Version 6)
Quarter: 2021Q3

REPORT INFORMATION
  Report Type: Spontaneous
  Country: AU (occurrence: AU)
  Receive Date: 20210208
  Receipt Date: 20210826
  Transmission Date: 20211014
  Serious: Yes (Life-Threatening, Hospitalization, Other)
  Sender: FDA-Public Use
  Company Number: AU-CELGENEUS-AUS-20210106559

PATIENT
  Age: 71 Year
  Sex: Male
  Weight: 86.5 kg

DRUGS (58)
  1. NORMAL SALINE SOLUTION [Concomitant]
     Active Substance: SODIUM CHLORIDE
     Indication: PROPHYLAXIS
     Route: 048
     Dates: start: 20201230, end: 20210101
  2. ALLOPURINOL. [Concomitant]
     Active Substance: ALLOPURINOL
     Indication: PROPHYLAXIS
     Route: 048
     Dates: start: 20201229, end: 20210108
  3. FRUSEMIDE [Concomitant]
     Active Substance: FUROSEMIDE
     Route: 041
     Dates: start: 20210124, end: 20210124
  4. DIGOXIN. [Concomitant]
     Active Substance: DIGOXIN
     Indication: CARDIAC FAILURE CONGESTIVE
     Dosage: 62.5 MICROGRAM
     Route: 048
     Dates: start: 2006
  5. PANADOL [Concomitant]
     Active Substance: ACETAMINOPHEN
     Indication: ANALGESIC THERAPY
     Dosage: 3000 MILLIGRAM
     Route: 048
     Dates: start: 20201212, end: 20210119
  6. VALTREX [Concomitant]
     Active Substance: VALACYCLOVIR HYDROCHLORIDE
     Indication: PROPHYLAXIS
     Dosage: 5000 MILLIGRAM
     Route: 048
     Dates: start: 20201229
  7. AUGMENTIN FORT DUO [Concomitant]
     Indication: ANTIBIOTIC PROPHYLAXIS
     Dosage: 875?125 MG
     Route: 048
     Dates: start: 20201229, end: 20210107
  8. TRIMETHOPRIM, SULFAMETHOXAZOLE [Concomitant]
     Active Substance: SULFAMETHOXAZOLE\TRIMETHOPRIM
     Indication: ANTIFUNGAL PROPHYLAXIS
     Dosage: 160?800 MG
     Route: 048
     Dates: start: 20201230, end: 20210208
  9. ELOCON [Concomitant]
     Active Substance: MOMETASONE FUROATE
     Indication: CUTANEOUS VASCULITIS
     Dosage: .1 PERCENT
     Route: 061
     Dates: start: 20210107
  10. CALCIUM CARBONATE. [Concomitant]
     Active Substance: CALCIUM CARBONATE
     Indication: ACUTE KIDNEY INJURY
     Dosage: 1200 MILLIGRAM
     Route: 048
     Dates: start: 20210101, end: 20210202
  11. COLOXYL WITH SENNA(DOCUSATE SODIUM;SENNOSIDE A+B)(SENNOSIDE A+B, DOCUS [Concomitant]
     Dosage: 2 TABLET
     Route: 048
     Dates: start: 20210101
  12. FRUSEMIDE [Concomitant]
     Active Substance: FUROSEMIDE
     Dosage: 80 MILLIGRAM
     Route: 048
     Dates: start: 20210106, end: 20210128
  13. FRUSEMIDE [Concomitant]
     Active Substance: FUROSEMIDE
     Route: 048
     Dates: start: 20210123, end: 20210123
  14. MAGNESIUM ASPARTATE [Concomitant]
     Active Substance: MAGNESIUM ASPARTATE
     Dosage: 1000 MILLIGRAM
     Route: 048
     Dates: start: 20210121
  15. TAPENTADOL [Concomitant]
     Active Substance: TAPENTADOL
     Dosage: 100 MILLIGRAM
     Route: 048
     Dates: start: 20210111, end: 20210112
  16. COLOXYL WITH SENNA(DOCUSATE SODIUM;SENNOSIDE A+B)(SENNOSIDE A+B, DOCUS [Concomitant]
     Indication: CONSTIPATION
     Dosage: 4 TABLET
     Route: 048
     Dates: start: 202008, end: 20201226
  17. PETER MAC MOUTHWASHMOUTHWASH (MENTHA X PIPERITA OIL;METHYL SALICYLATE; [Concomitant]
     Indication: DENTAL DISORDER PROPHYLAXIS
     Route: 065
     Dates: start: 20210121
  18. PETER MAC MOUTHWASHMOUTHWASH (MENTHA X PIPERITA OIL;METHYL SALICYLATE; [Concomitant]
     Route: 048
     Dates: start: 20210120
  19. POSACONAZOLE [Concomitant]
     Active Substance: POSACONAZOLE
     Indication: ANTIFUNGAL PROPHYLAXIS
     Dosage: 300 MILLIGRAM
     Route: 048
     Dates: start: 20210113, end: 20210208
  20. FRUSEMIDE [Concomitant]
     Active Substance: FUROSEMIDE
     Route: 041
     Dates: start: 20210124, end: 20210124
  21. FRUSEMIDE [Concomitant]
     Active Substance: FUROSEMIDE
     Route: 041
     Dates: start: 20210202, end: 20210202
  22. AUGMENTIN FORT DUO [Concomitant]
     Dosage: 875?125 MG
     Route: 048
     Dates: start: 20210111, end: 20210119
  23. CALCIUM CARBONATE. [Concomitant]
     Active Substance: CALCIUM CARBONATE
     Indication: HYPERPHOSPHATAEMIA
     Dosage: 1200 MILLIGRAM
     Route: 048
     Dates: start: 20210120, end: 20210203
  24. VENETOCLAX. [Concomitant]
     Active Substance: VENETOCLAX
     Dosage: 400 MILLIGRAM
     Route: 048
     Dates: start: 20210102, end: 20210111
  25. ALLOPURINOL. [Concomitant]
     Active Substance: ALLOPURINOL
     Indication: GOUT
  26. ENOXAPARIN [Concomitant]
     Active Substance: ENOXAPARIN
     Indication: THROMBOSIS PROPHYLAXIS
     Dosage: 40 MILLIGRAM
     Route: 058
     Dates: start: 20201213, end: 20210128
  27. BISOPROLOL [Concomitant]
     Active Substance: BISOPROLOL
     Indication: HYPERTENSION
  28. POTASSIUM CHLORIDE. [Concomitant]
     Active Substance: POTASSIUM CHLORIDE
     Indication: CARDIOVASCULAR EVENT PROPHYLAXIS
     Dosage: 1200 MILLIGRAM
     Route: 048
     Dates: start: 20210107
  29. CALCIUM CARBONATE. [Concomitant]
     Active Substance: CALCIUM CARBONATE
     Indication: TUMOUR LYSIS SYNDROME
     Dosage: 1200 MILLIGRAM
     Route: 048
     Dates: start: 20201230, end: 20201230
  30. FRUSEMIDE [Concomitant]
     Active Substance: FUROSEMIDE
     Dosage: 40 MILLIGRAM
     Route: 048
     Dates: start: 20210129
  31. ENOXAPARIN [Concomitant]
     Active Substance: ENOXAPARIN
     Dosage: 40 MILLIGRAM
     Route: 058
     Dates: start: 20210129, end: 20210202
  32. PREDNISOLONE. [Concomitant]
     Active Substance: PREDNISOLONE
     Dosage: 25 MILLIGRAM
     Route: 048
     Dates: start: 20210202, end: 20210207
  33. TEMAZEPAM. [Concomitant]
     Active Substance: TEMAZEPAM
     Indication: PROPHYLAXIS
     Route: 048
     Dates: start: 20210104
  34. VANCOMYCIN [Concomitant]
     Active Substance: VANCOMYCIN
     Indication: CLOSTRIDIUM DIFFICILE COLITIS
     Dosage: 500 MILLIGRAM
     Route: 048
     Dates: start: 20210202, end: 20210213
  35. AZACITIDINE. [Suspect]
     Active Substance: AZACITIDINE
     Route: 058
     Dates: start: 20210104, end: 20210109
  36. FRUSEMIDE [Concomitant]
     Active Substance: FUROSEMIDE
     Route: 041
     Dates: start: 20210109, end: 20210109
  37. FRUSEMIDE [Concomitant]
     Active Substance: FUROSEMIDE
     Route: 041
     Dates: start: 20210131, end: 20210131
  38. ZINC OXIDE. [Concomitant]
     Active Substance: ZINC OXIDE
     Indication: PROPHYLAXIS
     Route: 061
     Dates: start: 2020
  39. OXYCODONE [Concomitant]
     Active Substance: OXYCODONE
     Indication: ANALGESIC THERAPY
     Route: 048
     Dates: start: 20210120, end: 20210208
  40. AZACITIDINE. [Suspect]
     Active Substance: AZACITIDINE
     Indication: MYELODYSPLASTIC SYNDROME
     Route: 058
     Dates: start: 20201229
  41. FRUSEMIDE [Concomitant]
     Active Substance: FUROSEMIDE
     Indication: CARDIAC FAILURE CONGESTIVE
     Dosage: 40 MILLIGRAM
     Route: 048
     Dates: start: 20201224, end: 20210105
  42. FRUSEMIDE [Concomitant]
     Active Substance: FUROSEMIDE
     Indication: OEDEMA PERIPHERAL
     Route: 048
     Dates: start: 20201230, end: 20210105
  43. FRUSEMIDE [Concomitant]
     Active Substance: FUROSEMIDE
     Route: 041
     Dates: start: 20210202, end: 20210202
  44. DEFERASIROX. [Concomitant]
     Active Substance: DEFERASIROX
     Indication: PROPHYLAXIS
     Dosage: 1980 MILLIGRAM
     Route: 048
     Dates: start: 2020
  45. MAGNESIUM ASPARTATE [Concomitant]
     Active Substance: MAGNESIUM ASPARTATE
     Indication: CARDIOVASCULAR EVENT PROPHYLAXIS
     Dosage: 1000 MILLIGRAM
     Route: 048
     Dates: start: 20201230, end: 20210120
  46. PREDNISOLONE. [Concomitant]
     Active Substance: PREDNISOLONE
     Dosage: 25 MILLIGRAM
     Route: 048
     Dates: start: 20210114, end: 20210117
  47. MOMETASONE [Concomitant]
     Active Substance: MOMETASONE
     Indication: ACUTE FEBRILE NEUTROPHILIC DERMATOSIS
     Route: 061
     Dates: start: 20210121, end: 20210203
  48. OXYCODONE [Concomitant]
     Active Substance: OXYCODONE
     Indication: ANALGESIC THERAPY
     Dosage: 2.5?10 MG
     Route: 048
     Dates: start: 20201212, end: 20210108
  49. FRUSEMIDE [Concomitant]
     Active Substance: FUROSEMIDE
     Route: 041
     Dates: start: 20210105, end: 20210105
  50. FRUSEMIDE [Concomitant]
     Active Substance: FUROSEMIDE
     Route: 041
     Dates: start: 20210131, end: 20210131
  51. PANADOL [Concomitant]
     Active Substance: ACETAMINOPHEN
     Indication: ACUTE FEBRILE NEUTROPHILIC DERMATOSIS
     Route: 048
     Dates: start: 20210120
  52. BISOPROLOL [Concomitant]
     Active Substance: BISOPROLOL
     Indication: CARDIAC FAILURE CONGESTIVE
     Dosage: 2.5 MILLIGRAM
     Route: 048
     Dates: start: 20201225
  53. PREDNISOLONE. [Concomitant]
     Active Substance: PREDNISOLONE
     Indication: CUTANEOUS VASCULITIS
     Dosage: 25 MILLIGRAM
     Route: 048
     Dates: start: 20210108, end: 20210113
  54. TAPENTADOL [Concomitant]
     Active Substance: TAPENTADOL
     Indication: ANALGESIC THERAPY
     Route: 048
     Dates: start: 20210108, end: 20210112
  55. TAPENTADOL [Concomitant]
     Active Substance: TAPENTADOL
     Dosage: 50?100 MG
     Route: 048
     Dates: start: 20210126
  56. TAPENTADOL [Concomitant]
     Active Substance: TAPENTADOL
     Dosage: 200 MILLIGRAM
     Route: 048
     Dates: start: 20210113, end: 20210227
  57. VENETOCLAX. [Concomitant]
     Active Substance: VENETOCLAX
     Indication: MYELODYSPLASTIC SYNDROME
     Dosage: 400 MILLIGRAM
     Route: 048
     Dates: start: 20201229, end: 20201229
  58. MELATONIN [Concomitant]
     Active Substance: MELATONIN
     Indication: PROPHYLAXIS
     Dosage: 2 MILLIGRAM
     Route: 048
     Dates: start: 20210122, end: 20210204

REACTIONS (2)
  - Febrile neutropenia [Recovered/Resolved]
  - Acute kidney injury [Recovered/Resolved]

NARRATIVE: CASE EVENT DATE: 20210120
